FAERS Safety Report 4658990-8 (Version None)
Quarter: 2005Q2

REPORT INFORMATION
  Report Type: 
  Country: None (occurrence: None)
  Receive Date: 20050509
  Receipt Date: 20050427
  Transmission Date: 20051028
  Serious: Yes (Death, Hospitalization)
  Sender: FDA-Public Use
  Company Number: 05P-087-0297969-00

PATIENT
  Age: 58 Year
  Sex: Male
  Weight: 65 kg

DRUGS (7)
  1. OMNICEF [Suspect]
     Indication: INFLUENZA
     Dosage: 100 MG, 3 IN 1 D, ORAL
     Route: 048
     Dates: start: 20050223, end: 20050225
  2. OMNICEF [Suspect]
     Indication: PHARYNGITIS
     Dosage: 100 MG, 3 IN 1 D, ORAL
     Route: 048
     Dates: start: 20050223, end: 20050225
  3. OSELTAMAVIR [Suspect]
     Indication: INFLUENZA
     Dosage: 75 MG, 2 IN 1 D, ORAL
     Route: 048
     Dates: start: 20050223, end: 20050225
  4. OSELTAMAVIR [Suspect]
     Indication: PHARYNGITIS
     Dosage: 75 MG, 2 IN 1 D, ORAL
     Route: 048
     Dates: start: 20050223, end: 20050225
  5. PL GRAN. [Suspect]
     Indication: INFLUENZA
     Dosage: 1 GM, 3 IN 1 D, ORAL
     Route: 048
     Dates: start: 20050223, end: 20050225
  6. PL GRAN. [Suspect]
     Indication: PHARYNGITIS
     Dosage: 1 GM, 3 IN 1 D, ORAL
     Route: 048
     Dates: start: 20050223, end: 20050225
  7. KAKKON-TO [Concomitant]

REACTIONS (7)
  - CONDITION AGGRAVATED [None]
  - PHARYNGOLARYNGEAL PAIN [None]
  - PYREXIA [None]
  - RESPIRATORY FAILURE [None]
  - SHOCK [None]
  - THIRST [None]
  - TOXIC EPIDERMAL NECROLYSIS [None]
